FAERS Safety Report 7895998-3 (Version None)
Quarter: 2011Q4

REPORT INFORMATION
  Report Type: 
  Country: None (occurrence: None)
  Receive Date: 20111106
  Receipt Date: 20110902
  Transmission Date: 20120403
  Serious: No
  Sender: FDA-Public Use
  Company Number: US-AMGEN-USASP2011045174

PATIENT
  Sex: Female
  Weight: 107 kg

DRUGS (19)
  1. OMEPRAZOLE [Concomitant]
     Dosage: 20 MG, UNK
  2. ZINC [Concomitant]
     Dosage: UNK
  3. PAROXETINE HCL [Concomitant]
     Dosage: 20 MG, UNK
  4. CALCIUM D [Concomitant]
     Dosage: UNK
  5. STOOL SOFTENER [Concomitant]
     Dosage: UNK
  6. CITRUCEL [Concomitant]
     Dosage: 500 MG, UNK
  7. ENBREL [Suspect]
     Indication: PRODUCT USED FOR UNKNOWN INDICATION
     Dosage: 50 MG, 2 TIMES/WK
     Route: 058
  8. TACLONEX [Concomitant]
     Dosage: UNK
  9. LEVOTHYROXINE SODIUM [Concomitant]
     Dosage: 100 MUG, UNK
  10. VECTICAL [Concomitant]
     Dosage: 3 MUG, UNK
  11. EFFEXOR [Concomitant]
     Dosage: 150 MG, UNK
  12. SELENIUM [Concomitant]
     Dosage: 100 MUG, UNK
  13. LORATADINE [Concomitant]
     Dosage: UNK
  14. LOVASTATIN [Concomitant]
     Dosage: 10 MG, UNK
  15. CLOBETASOL [Concomitant]
     Dosage: 0.05 %, UNK
  16. OSTEO BI-FLEX [Concomitant]
  17. ASCORBIC ACID [Concomitant]
     Dosage: UNK
  18. MULTI-VITAMIN [Concomitant]
  19. FISH OIL [Concomitant]
     Dosage: UNK

REACTIONS (1)
  - UPPER-AIRWAY COUGH SYNDROME [None]
